FAERS Safety Report 8432401-9 (Version None)
Quarter: 2012Q2

REPORT INFORMATION
  Report Type: 
  Country: None (occurrence: None)
  Receive Date: 20120613
  Receipt Date: 20120605
  Transmission Date: 20120825
  Serious: Yes (Hospitalization)
  Sender: FDA-Public Use
  Company Number: FR-SANOFI-AVENTIS-2012SA039824

PATIENT
  Age: 64 Year
  Sex: Male

DRUGS (9)
  1. ASPIRIN [Concomitant]
     Route: 048
  2. ATORVASTATIN [Concomitant]
  3. VALIUM [Concomitant]
  4. PLAVIX [Suspect]
     Route: 048
     Dates: start: 20120524, end: 20120524
  5. VALSARTAN [Concomitant]
  6. OMEPRAZOLE [Concomitant]
  7. VISIPAQUE [Suspect]
     Route: 065
     Dates: start: 20120524, end: 20120524
  8. LERCANIDIPINE [Concomitant]
  9. METFORMIN HCL [Concomitant]

REACTIONS (4)
  - VASOPLEGIA SYNDROME [None]
  - URTICARIA [None]
  - FEELING HOT [None]
  - OVERDOSE [None]
